APPROVED DRUG PRODUCT: CALCITRIOL
Active Ingredient: CALCITRIOL
Strength: 0.001MG/ML
Dosage Form/Route: INJECTABLE;INJECTION
Application: A211030 | Product #001 | TE Code: AP
Applicant: GLAND PHARMA LTD
Approved: Feb 3, 2020 | RLD: No | RS: No | Type: RX